FAERS Safety Report 12665889 (Version 2)
Quarter: 2016Q4

REPORT INFORMATION
  Report Type: Spontaneous
  Country: US (occurrence: US)
  Receive Date: 20160818
  Receipt Date: 20161122
  Transmission Date: 20170207
  Serious: No
  Sender: FDA-Public Use
  Company Number: US-ALLERGAN-1661254US

PATIENT
  Age: 58 Year
  Sex: Male
  Weight: 93.97 kg

DRUGS (1)
  1. KYBELLA [Suspect]
     Active Substance: DEOXYCHOLIC ACID
     Indication: FAT TISSUE INCREASED
     Dosage: UNK
     Route: 058
     Dates: start: 20160611, end: 20160611

REACTIONS (9)
  - Feeling abnormal [Unknown]
  - Dysphagia [Unknown]
  - Soft tissue mass [Unknown]
  - Oropharyngeal pain [Unknown]
  - Odynophagia [Unknown]
  - Lymphoedema [Unknown]
  - Injection site swelling [Unknown]
  - Pharyngeal erythema [Unknown]
  - Oral pustule [Unknown]

NARRATIVE: CASE EVENT DATE: 20160621
